FAERS Safety Report 8598276 (Version 3)
Quarter: 2013Q1

REPORT INFORMATION
  Report Type: Spontaneous
  Country: US (occurrence: US)
  Receive Date: 20120605
  Receipt Date: 20130122
  Transmission Date: 20140127
  Serious: Yes (Death, Other)
  Sender: FDA-Public Use
  Company Number: US-ELI_LILLY_AND_COMPANY-US201205009064

PATIENT
  Age: 58 Year
  Sex: Female
  Weight: 76.19 kg

DRUGS (12)
  1. CYMBALTA [Suspect]
     Indication: FIBROMYALGIA
     Dosage: 60 MG, QD
     Dates: start: 200603
  2. DEXAMETHASONE [Concomitant]
  3. HYDROCHLOROTHIAZIDE [Concomitant]
  4. PRILOSEC [Concomitant]
  5. COLACE [Concomitant]
  6. LEVOTHYROXIN [Concomitant]
  7. BENADRYL                           /00000402/ [Concomitant]
  8. CLONAZEPAM [Concomitant]
  9. REMERON [Concomitant]
  10. FENTANYL [Concomitant]
  11. HALDOL [Concomitant]
  12. COMPAZINE [Concomitant]
     Indication: NAUSEA

REACTIONS (1)
  - Intestinal adenocarcinoma [Fatal]
